FAERS Safety Report 22252498 (Version 1)
Quarter: 2023Q2

REPORT INFORMATION
  Report Type: Spontaneous
  Country: US (occurrence: US)
  Receive Date: 20230426
  Receipt Date: 20230426
  Transmission Date: 20230721
  Serious: No
  Sender: FDA-Public Use
  Company Number: US-STRIDES ARCOLAB LIMITED-2023SP001522

PATIENT
  Age: 31 Year
  Sex: Female

DRUGS (12)
  1. DOXYCYCLINE [Suspect]
     Active Substance: DOXYCYCLINE
     Indication: Postoperative wound infection
     Dosage: UNK
     Route: 065
  2. DOXYCYCLINE [Suspect]
     Active Substance: DOXYCYCLINE
     Indication: Staphylococcal infection
  3. DOXYCYCLINE [Suspect]
     Active Substance: DOXYCYCLINE
     Indication: Citrobacter infection
  4. AZITHROMYCIN [Suspect]
     Active Substance: AZITHROMYCIN
     Indication: Postoperative wound infection
     Dosage: UNK
     Route: 065
  5. AZITHROMYCIN [Suspect]
     Active Substance: AZITHROMYCIN
     Indication: Staphylococcal infection
  6. AZITHROMYCIN [Suspect]
     Active Substance: AZITHROMYCIN
     Indication: Citrobacter infection
  7. COTRIMOXAZOLE [Suspect]
     Active Substance: SULFAMETHOXAZOLE\TRIMETHOPRIM
     Indication: Postoperative wound infection
     Dosage: UNK
     Route: 065
  8. COTRIMOXAZOLE [Suspect]
     Active Substance: SULFAMETHOXAZOLE\TRIMETHOPRIM
     Indication: Staphylococcal infection
  9. COTRIMOXAZOLE [Suspect]
     Active Substance: SULFAMETHOXAZOLE\TRIMETHOPRIM
     Indication: Citrobacter infection
  10. GENTAMICIN [Suspect]
     Active Substance: GENTAMICIN
     Indication: Postoperative wound infection
     Dosage: UNK
     Route: 065
  11. GENTAMICIN [Suspect]
     Active Substance: GENTAMICIN
     Indication: Staphylococcal infection
  12. GENTAMICIN [Suspect]
     Active Substance: GENTAMICIN
     Indication: Citrobacter infection

REACTIONS (1)
  - Drug hypersensitivity [Unknown]
